FAERS Safety Report 22777091 (Version 2)
Quarter: 2024Q2

REPORT INFORMATION
  Report Type: Report from Study
  Country: RO (occurrence: RO)
  Receive Date: 20230802
  Receipt Date: 20240627
  Transmission Date: 20240715
  Serious: Yes (Other)
  Sender: FDA-Public Use
  Company Number: RO-ABBVIE-22K-135-4259170-00

PATIENT
  Age: 72 Year
  Sex: Male

DRUGS (3)
  1. CARBIDOPA\LEVODOPA [Suspect]
     Active Substance: CARBIDOPA\LEVODOPA
     Indication: Parkinson^s disease
     Dosage: DM=3.00 DC=1.60 ED=0.90 NRED=3; DMN=0.00 DCN=0.00 EDN=0.00 NREDN=0
     Route: 050
     Dates: start: 20190422, end: 20230731
  2. CARBIDOPA\LEVODOPA [Suspect]
     Active Substance: CARBIDOPA\LEVODOPA
  3. CONTROLOC [Concomitant]
     Active Substance: PANTOPRAZOLE SODIUM
     Indication: Hyperchlorhydria
     Dosage: 1 X 1, FORM STRENGTH: 40 MG

REACTIONS (6)
  - Granuloma [Recovering/Resolving]
  - Secretion discharge [Recovering/Resolving]
  - Erythema [Recovering/Resolving]
  - Gastritis erosive [Not Recovered/Not Resolved]
  - Stoma complication [Not Recovered/Not Resolved]
  - Gastritis hypertrophic [Not Recovered/Not Resolved]

NARRATIVE: CASE EVENT DATE: 20220128
